FAERS Safety Report 4854145-2 (Version None)
Quarter: 2005Q4

REPORT INFORMATION
  Report Type: 
  Country: None (occurrence: None)
  Receive Date: 20051125
  Receipt Date: 20050502
  Transmission Date: 20060501
  Serious: Yes (Other)
  Sender: FDA-Public Use
  Company Number: US-JNJFOC-20050500828

PATIENT
  Age: 71 Year
  Sex: Male

DRUGS (2)
  1. LEVAQUIN [Suspect]
     Indication: SINUSITIS
     Dosage: 1 IN 24 HOUR, ORAL
     Route: 048
     Dates: start: 20050315, end: 20050322
  2. XANAX [Concomitant]

REACTIONS (2)
  - ANXIETY [None]
  - SUICIDAL IDEATION [None]
